FAERS Safety Report 7585760-3 (Version None)
Quarter: 2011Q3

REPORT INFORMATION
  Report Type: 
  Country: None (occurrence: None)
  Receive Date: 20110701
  Receipt Date: 20110620
  Transmission Date: 20111222
  Serious: Yes (Other)
  Sender: FDA-Public Use
  Company Number: GB-MYLANLABS-2011S1012612

PATIENT
  Age: 51 Year
  Sex: Male

DRUGS (2)
  1. ALLOPURINOL [Suspect]
     Indication: PROPHYLAXIS
     Dates: end: 20110301
  2. ALLOPURINOL [Suspect]
     Indication: GOUT
     Dates: end: 20110301

REACTIONS (3)
  - GOUT [None]
  - PRODUCT QUALITY ISSUE [None]
  - DRUG INEFFECTIVE [None]
